FAERS Safety Report 19248466 (Version 2)
Quarter: 2021Q2

REPORT INFORMATION
  Report Type: Spontaneous
  Country: US (occurrence: US)
  Receive Date: 20210512
  Receipt Date: 20210601
  Transmission Date: 20210717
  Serious: Yes (Congenital Anomaly)
  Sender: FDA-Public Use
  Company Number: US-INDIVIOR US-INDV-129596-2021

PATIENT

DRUGS (1)
  1. BUPRENORPHINE. [Suspect]
     Active Substance: BUPRENORPHINE
     Indication: DRUG DEPENDENCE
     Dosage: UNK
     Route: 064

REACTIONS (3)
  - Congenital cerebrovascular anomaly [Unknown]
  - Cleft palate [Unknown]
  - Foetal exposure during pregnancy [Recovered/Resolved]
